FAERS Safety Report 6502618-9 (Version None)
Quarter: 2009Q4

REPORT INFORMATION
  Report Type: 
  Country: None (occurrence: None)
  Receive Date: 20091127
  Receipt Date: 20090810
  Transmission Date: 20100525
  Serious: Yes (Life-Threatening, Hospitalization)
  Sender: FDA-Public Use
  Company Number: 001418

PATIENT
  Sex: Male
  Weight: 55.3 kg

DRUGS (4)
  1. LACOSAMIDE [Suspect]
     Indication: CONVULSION
     Dosage: (100 MG BID ORAL)
     Route: 048
     Dates: start: 20090701
  2. KEPPRA [Suspect]
     Indication: CONVULSION
     Dosage: (500 MG BID ORAL)
     Route: 048
     Dates: start: 20090501, end: 20090701
  3. CARBAMAZEPINE [Concomitant]
  4. PHENOBARBITAL TAB [Concomitant]

REACTIONS (4)
  - DELUSIONAL PERCEPTION [None]
  - INCOHERENT [None]
  - PERSONALITY CHANGE [None]
  - SUICIDE ATTEMPT [None]
